FAERS Safety Report 15415020 (Version 2)
Quarter: 2018Q4

REPORT INFORMATION
  Report Type: Spontaneous
  Country: FR (occurrence: FR)
  Receive Date: 20180921
  Receipt Date: 20181008
  Transmission Date: 20190204
  Serious: Yes (Death, Hospitalization, Other)
  Sender: FDA-Public Use
  Company Number: FR-SHIRE-FR201835352

PATIENT

DRUGS (4)
  1. FEIBA NF [Suspect]
     Active Substance: ANTI-INHIBITOR COAGULANT COMPLEX
     Indication: HAEMORRHAGE
  2. FEIBA NF [Suspect]
     Active Substance: ANTI-INHIBITOR COAGULANT COMPLEX
     Indication: ACQUIRED HAEMOPHILIA
     Dosage: 4000 IU, UNK
     Route: 065
     Dates: start: 20180801
  3. NOVOSEVEN [Suspect]
     Active Substance: COAGULATION FACTOR VIIA RECOMBINANT HUMAN
     Indication: HAEMORRHAGE
  4. NOVOSEVEN [Suspect]
     Active Substance: COAGULATION FACTOR VIIA RECOMBINANT HUMAN
     Indication: ACQUIRED HAEMOPHILIA
     Dosage: 1 MG, UNK
     Route: 065
     Dates: start: 20180812

REACTIONS (12)
  - Shock haemorrhagic [Fatal]
  - Intestinal obstruction [Unknown]
  - Metastases to lung [Unknown]
  - Subileus [Unknown]
  - Haemorrhage [Unknown]
  - Anti factor VIII antibody test [Unknown]
  - Condition aggravated [Unknown]
  - Rectal adenocarcinoma [Unknown]
  - Paraneoplastic syndrome [Unknown]
  - Rectal abscess [Unknown]
  - Peritoneal haemorrhage [Unknown]
  - Immune system disorder [Unknown]
